FAERS Safety Report 9043386 (Version 1)
Quarter: 2013Q1

REPORT INFORMATION
  Report Type: Report from Study
  Country: US (occurrence: US)
  Receive Date: 20130129
  Receipt Date: 20130129
  Transmission Date: 20140127
  Serious: No
  Sender: FDA-Public Use
  Company Number: US-ABBOTT-12P-163-0912756-00

PATIENT
  Age: 81 Year
  Sex: Female

DRUGS (9)
  1. HUMIRA 40 MG/0.8 ML PEN [Suspect]
     Indication: RHEUMATOID ARTHRITIS
  2. LASIX [Concomitant]
     Indication: PRODUCT USED FOR UNKNOWN INDICATION
  3. FOLIC ACID [Concomitant]
     Indication: PRODUCT USED FOR UNKNOWN INDICATION
  4. VITAMIN B12 [Concomitant]
     Indication: PRODUCT USED FOR UNKNOWN INDICATION
     Dosage: OTC
  5. TRAMADOLE [Concomitant]
     Indication: PAIN
  6. FLEXERAL [Concomitant]
     Indication: PAIN
  7. ATENOLOL [Concomitant]
     Indication: BLOOD PRESSURE
  8. NEXIUM [Concomitant]
     Indication: GASTRIC DISORDER
  9. NORTRIPTYLINE [Concomitant]
     Indication: INSOMNIA

REACTIONS (1)
  - Injection site nodule [Recovering/Resolving]
